FAERS Safety Report 21380483 (Version 2)
Quarter: 2022Q3

REPORT INFORMATION
  Report Type: Spontaneous
  Country: US (occurrence: US)
  Receive Date: 20220927
  Receipt Date: 20220929
  Transmission Date: 20221027
  Serious: No
  Sender: FDA-Public Use
  Company Number: US-BAYER-2022A134112

PATIENT
  Age: 81 Year
  Sex: Female

DRUGS (1)
  1. KERENDIA [Suspect]
     Active Substance: FINERENONE
     Dosage: UNK
     Dates: start: 202208

REACTIONS (3)
  - Blood creatinine increased [None]
  - Micturition urgency [None]
  - Accident [None]

NARRATIVE: CASE EVENT DATE: 20220901
